FAERS Safety Report 6889214-9 (Version None)
Quarter: 2010Q3

REPORT INFORMATION
  Report Type: 
  Country: None (occurrence: None)
  Receive Date: 20100730
  Receipt Date: 20080115
  Transmission Date: 20110219
  Serious: No
  Sender: FDA-Public Use
  Company Number: US-PFIZER INC-2008005271

PATIENT
  Sex: Female
  Weight: 72.727 kg

DRUGS (2)
  1. LIPITOR [Suspect]
     Indication: BLOOD CHOLESTEROL INCREASED
     Dates: start: 20071228
  2. MICARDIS [Concomitant]
     Indication: HYPERTENSION

REACTIONS (5)
  - CHEST PAIN [None]
  - DRY SKIN [None]
  - ERYTHEMA [None]
  - HYPERTENSION [None]
  - PAIN IN EXTREMITY [None]
